FAERS Safety Report 10586186 (Version 1)
Quarter: 2014Q4

REPORT INFORMATION
  Report Type: Report from Study
  Country: NL (occurrence: NL)
  Receive Date: 20141116
  Receipt Date: 20141116
  Transmission Date: 20150529
  Serious: Yes (Hospitalization, Other)
  Sender: FDA-Public Use
  Company Number: NL-AMGEN-NLDSL2013094568

PATIENT
  Age: 65 Year
  Sex: Female

DRUGS (1)
  1. NEULASTA [Suspect]
     Active Substance: PEGFILGRASTIM
     Indication: PRODUCT USED FOR UNKNOWN INDICATION
     Dosage: 6 MG, Q2WK
     Route: 065

REACTIONS (7)
  - Respiratory tract infection [Recovering/Resolving]
  - Oral fungal infection [Unknown]
  - Vulvovaginal mycotic infection [Unknown]
  - Procedural haemorrhage [Unknown]
  - Wound [Unknown]
  - Bone pain [Unknown]
  - Body temperature increased [Unknown]
